FAERS Safety Report 5533136-2 (Version None)
Quarter: 2007Q4

REPORT INFORMATION
  Report Type: 
  Country: None (occurrence: None)
  Receive Date: 20071130
  Receipt Date: 20071130
  Transmission Date: 20080405
  Serious: Yes (Hospitalization)
  Sender: FDA-Public Use
  Company Number: None

PATIENT
  Age: 66 Year
  Sex: Female

DRUGS (1)
  1. THYROID TAB [Suspect]
     Indication: HYPOTHYROIDISM
     Dosage: 90MG  DAILY  PO
     Route: 048
     Dates: start: 20071109, end: 20071122

REACTIONS (2)
  - ATRIAL FIBRILLATION [None]
  - POST PROCEDURAL COMPLICATION [None]
